FAERS Safety Report 4577245-3 (Version None)
Quarter: 2005Q1

REPORT INFORMATION
  Report Type: 
  Country: None (occurrence: None)
  Receive Date: 20050209
  Receipt Date: 20050126
  Transmission Date: 20050727
  Serious: Yes (Death)
  Sender: FDA-Public Use
  Company Number: 2004AL000956

PATIENT
  Age: 21 Year
  Sex: Female

DRUGS (2)
  1. HYDRAMINE [Suspect]
     Dosage: PO
     Route: 048
  2. HYDRAMINE [Suspect]
     Dosage: PO
     Route: 048

REACTIONS (4)
  - CARDIAC ARREST [None]
  - COMPLETED SUICIDE [None]
  - CONVULSION [None]
  - DRUG LEVEL ABOVE THERAPEUTIC [None]
